FAERS Safety Report 6503699-9 (Version None)
Quarter: 2009Q4

REPORT INFORMATION
  Report Type: 
  Country: None (occurrence: None)
  Receive Date: 20091217
  Receipt Date: 20091208
  Transmission Date: 20100525
  Serious: Yes (Other)
  Sender: FDA-Public Use
  Company Number: PHEH2008US04277

PATIENT
  Sex: Female

DRUGS (3)
  1. ZOMETA [Suspect]
     Indication: BREAST CANCER
     Dosage: EVERY 3 WEEKS
     Route: 042
     Dates: start: 20010101
  2. AVASTIN [Concomitant]
  3. AROMASIN [Concomitant]
     Dosage: EVERY 3 WEEKS
     Route: 042

REACTIONS (22)
  - ANAEMIA [None]
  - ANHEDONIA [None]
  - ANXIETY [None]
  - ARTIFICIAL MENOPAUSE [None]
  - BONE DEBRIDEMENT [None]
  - BONE PAIN [None]
  - DEPRESSION [None]
  - DIARRHOEA [None]
  - DYSPHAGIA [None]
  - DYSPHONIA [None]
  - INJURY [None]
  - INSOMNIA [None]
  - NAUSEA [None]
  - ODYNOPHAGIA [None]
  - OSTEONECROSIS [None]
  - PAIN [None]
  - PAIN IN JAW [None]
  - PHARYNGEAL ERYTHEMA [None]
  - REFLUX OESOPHAGITIS [None]
  - SPINAL OSTEOARTHRITIS [None]
  - WEIGHT DECREASED [None]
  - WOUND INFECTION [None]
